FAERS Safety Report 10009373 (Version 2)
Quarter: 2014Q1

REPORT INFORMATION
  Report Type: Spontaneous
  Country: US (occurrence: US)
  Receive Date: 20140313
  Receipt Date: 20140313
  Transmission Date: 20141002
  Serious: No
  Sender: FDA-Public Use
  Company Number: US-INCYTE CORPORATION-2012IN001448

PATIENT
  Age: 91 Year
  Sex: Female

DRUGS (9)
  1. JAKAFI [Suspect]
     Indication: POLYCYTHAEMIA VERA
     Dosage: 10 MG, BID
     Route: 048
     Dates: start: 20120601
  2. ZOLPIDEM [Concomitant]
  3. FUROSEMIDE [Concomitant]
  4. ICAPS PLUS [Concomitant]
  5. ALLOPURINOL [Concomitant]
  6. LEVOTHYROXINE SODIUM [Concomitant]
  7. VERAPAMIL HYDROCHLORIDE [Concomitant]
  8. MULTIVITAMIN [Concomitant]
  9. OMEPRAZOLE [Concomitant]

REACTIONS (7)
  - Diarrhoea [Unknown]
  - Muscle spasms [Unknown]
  - Fatigue [Unknown]
  - Drug dose omission [Unknown]
  - Asthenia [Unknown]
  - Haemoglobin decreased [Unknown]
  - Haematocrit decreased [Unknown]
